FAERS Safety Report 21696495 (Version 12)
Quarter: 2024Q1

REPORT INFORMATION
  Report Type: Spontaneous
  Country: CA (occurrence: CA)
  Receive Date: 20221207
  Receipt Date: 20240319
  Transmission Date: 20240410
  Serious: Yes (Hospitalization, Other)
  Sender: FDA-Public Use
  Company Number: CA-CELLTRION INC.-2022CA020625

PATIENT

DRUGS (6)
  1. INFLECTRA [Suspect]
     Active Substance: INFLIXIMAB-DYYB
     Indication: Colitis ulcerative
     Dosage: 370 MG, 55 MG/KG, 0, 2, 6 THEN EVERY 8 WEEKS WEEK 0 DOSE AT HOSPITAL (370 MG)
     Route: 042
     Dates: start: 20221125, end: 20221125
  2. INFLECTRA [Suspect]
     Active Substance: INFLIXIMAB-DYYB
     Dosage: 5 MG/KG, EVERY 8 WEEK (330 MG, EVERY 8 WEEKS)
     Route: 042
     Dates: start: 20230509
  3. INFLECTRA [Suspect]
     Active Substance: INFLIXIMAB-DYYB
     Dosage: 335 MG, EVERY 8 WEEKS
     Route: 042
     Dates: start: 20230713
  4. INFLECTRA [Suspect]
     Active Substance: INFLIXIMAB-DYYB
     Dosage: 5 MG/KG, EVERY 8 WEEKS
     Route: 042
     Dates: start: 20230914
  5. INFLECTRA [Suspect]
     Active Substance: INFLIXIMAB-DYYB
     Dosage: 5 MG/KG, EVERY 8 WEEKS (300 MG, 11 WEEKS 6 DAYS)
     Route: 042
     Dates: start: 20231206
  6. SOLU-MEDROL [Concomitant]
     Active Substance: METHYLPREDNISOLONE SODIUM SUCCINATE
     Indication: Colitis ulcerative
     Dosage: 30 MG, 2X/DAY
     Route: 065

REACTIONS (7)
  - Intestinal perforation [Unknown]
  - Colectomy [Unknown]
  - Proctostomy [Unknown]
  - Condition aggravated [Recovering/Resolving]
  - Weight decreased [Unknown]
  - Abscess [Not Recovered/Not Resolved]
  - Inappropriate schedule of product administration [Unknown]

NARRATIVE: CASE EVENT DATE: 20221101
